FAERS Safety Report 4401053-7 (Version None)
Quarter: 2004Q3

REPORT INFORMATION
  Report Type: 
  Country: None (occurrence: None)
  Receive Date: 20040907
  Receipt Date: 20031009
  Transmission Date: 20050211
  Serious: No
  Sender: FDA-Public Use
  Company Number: US-BRISTOL-MYERS SQUIBB COMPANY-12407185

PATIENT
  Sex: Female
  Weight: 48 kg

DRUGS (2)
  1. COUMADIN [Suspect]
     Indication: ATRIAL FIBRILLATION
     Dosage: DOSE: TWO 2-MG TABLETS DAILY FOR SEVERAL DAYS, FOLLOWED BY 1 TABLET DAILY.
     Route: 048
  2. TOPROL-XL [Concomitant]

REACTIONS (1)
  - ABDOMINAL PAIN UPPER [None]
